FAERS Safety Report 24599160 (Version 4)
Quarter: 2025Q2

REPORT INFORMATION
  Report Type: Spontaneous
  Country: US (occurrence: US)
  Receive Date: 20241110
  Receipt Date: 20250604
  Transmission Date: 20250717
  Serious: No
  Sender: SANOFI AVENTIS
  Company Number: US-SA-2024SA312518

PATIENT
  Age: 66 Year
  Sex: Female

DRUGS (25)
  1. DUPIXENT [Suspect]
     Active Substance: DUPILUMAB
     Indication: Chronic obstructive pulmonary disease
     Dosage: 300 MG, QOW
     Route: 058
  2. CHOLESTYRAMINE [Concomitant]
     Active Substance: CHOLESTYRAMINE
  3. CLARITIN [Concomitant]
     Active Substance: LORATADINE
  4. ASPIRIN [Concomitant]
     Active Substance: ASPIRIN
  5. B12 [Concomitant]
  6. CALCIUM\VITAMIN D [Concomitant]
     Active Substance: CALCIUM\VITAMIN D
  7. LEVSIN [Concomitant]
     Active Substance: HYOSCYAMINE SULFATE
  8. MAGNESIUM [Concomitant]
     Active Substance: MAGNESIUM
  9. VITAMINS [Concomitant]
     Active Substance: VITAMINS
  10. VITAMIN C [Concomitant]
     Active Substance: ASCORBIC ACID
  11. ALBUTEROL SULFATE [Concomitant]
     Active Substance: ALBUTEROL SULFATE
  12. ATORVASTATIN [Concomitant]
     Active Substance: ATORVASTATIN
  13. BREZTRI [Concomitant]
     Active Substance: BUDESONIDE\FORMOTEROL\GLYCOPYRROLATE
  14. BUPROPION HYDROCHLORIDE [Concomitant]
     Active Substance: BUPROPION HYDROCHLORIDE
  15. DIPHENOXYLATE [Concomitant]
     Active Substance: DIPHENOXYLATE
  16. FLUTICASONE [Concomitant]
     Active Substance: FLUTICASONE
  17. HYDROCODONE [Concomitant]
     Active Substance: HYDROCODONE
  18. IBUPROFEN [Concomitant]
     Active Substance: IBUPROFEN
  19. METOPROLOL [Concomitant]
     Active Substance: METOPROLOL
  20. MONTELUKAST [Concomitant]
     Active Substance: MONTELUKAST
  21. OMEPRAZOLE [Concomitant]
     Active Substance: OMEPRAZOLE
  22. POTASSIUM CHLORIDE [Concomitant]
     Active Substance: POTASSIUM CHLORIDE
  23. SERTRALINE HYDROCHLORIDE [Concomitant]
     Active Substance: SERTRALINE HYDROCHLORIDE
  24. LISINOPRIL [Concomitant]
     Active Substance: LISINOPRIL
  25. GLUCOSAMINE [Concomitant]
     Active Substance: GLUCOSAMINE

REACTIONS (7)
  - Asthma [Unknown]
  - Dyspnoea [Unknown]
  - Sleep disorder due to a general medical condition [Unknown]
  - Loss of personal independence in daily activities [Unknown]
  - Hypersensitivity [Unknown]
  - Injection site pain [Unknown]
  - Needle issue [Unknown]

NARRATIVE: CASE EVENT DATE: 20250301
